FAERS Safety Report 26204149 (Version 1)
Quarter: 2025Q4

REPORT INFORMATION
  Report Type: Spontaneous
  Country: GB (occurrence: GB)
  Receive Date: 20251226
  Receipt Date: 20251226
  Transmission Date: 20260118
  Serious: Yes (Congenital Anomaly, Other)
  Sender: INSUD PHARMA
  Company Number: GB-ASTRAZENECA-202512GLO004316GB

PATIENT
  Age: 37 Week

DRUGS (16)
  1. OMEPRAZOLE [Suspect]
     Active Substance: OMEPRAZOLE
     Indication: Product used for unknown indication
     Dosage: 40 MILLIGRAM, QD
     Dates: start: 20240731
  2. DULOXETINE [Suspect]
     Active Substance: DULOXETINE
     Indication: Product used for unknown indication
     Dosage: 23-FEB-2023
     Dates: start: 20230223
  3. CAMPHOR [Suspect]
     Active Substance: CAMPHOR
     Dosage: ((DOSE // DAILY DOSE) : X 200 MICROGRAM IN // MICROGRAM, BID
     Dates: start: 20250528
  4. QUETIAPINE FUMARATE [Suspect]
     Active Substance: QUETIAPINE FUMARATE
     Indication: Product used for unknown indication
     Dosage: 50 MILLIGRAM, QD
     Dates: start: 20150120
  5. FOLIC ACID [Concomitant]
     Active Substance: FOLIC ACID
     Dosage: 400 MICROGRAM
     Dates: start: 20250804, end: 20250811
  6. BECLOMETHASONE DIPROPIONATE [Suspect]
     Active Substance: BECLOMETHASONE DIPROPIONATE
     Dosage: (DOSE // DAILY DOSE):  X 200 MICROGRAM IN   // 400 MICROGRAM, BID
     Dates: start: 20240528
  7. MIRTAZAPINE [Suspect]
     Active Substance: MIRTAZAPINE
     Dosage: 45 MILLIGRAM
     Dates: start: 20220605
  8. ENOXAPARIN SODIUM [Suspect]
     Active Substance: ENOXAPARIN SODIUM
     Dosage: 40 MILLIGRAM
     Dates: start: 20250514
  9. LACTULOSE [Suspect]
     Active Substance: LACTULOSE
     Indication: Product used for unknown indication
     Dosage: 5 MILLILITRE
     Dates: start: 20250409
  10. POLYETHYLENE GLYCOLS [Suspect]
     Active Substance: POLYETHYLENE GLYCOLS
     Indication: Product used for unknown indication
     Dosage: 1-2 SACHETS DAILY
     Dates: start: 20250409
  11. DISODIUM HYDROGEN CITRATE\SODIUM LAURYL SULFATE [Suspect]
     Active Substance: DISODIUM HYDROGEN CITRATE\SODIUM LAURYL SULFATE
     Indication: Product used for unknown indication
     Dosage: 1 AS NEEDED RECTALLY
     Dates: start: 20250807
  12. SENNA [Suspect]
     Active Substance: SENNOSIDES
     Indication: Product used for unknown indication
     Dosage: 150 MILLIGRAM IN
     Dates: start: 20240731
  13. ALBUTEROL [Suspect]
     Active Substance: ALBUTEROL
     Indication: Product used for unknown indication
     Dosage: 2 PUFFS AS NEEDED
     Dates: start: 20240528
  14. AMOXICILLIN [Suspect]
     Active Substance: AMOXICILLIN
     Dosage: 1 THREE TIMES A DAY  FOR 1 WEEK
     Dates: start: 20250925, end: 20250925
  15. CLOTRIMAZOLE [Suspect]
     Active Substance: CLOTRIMAZOLE
     Dosage: 200 MILLIGRAM AT NIGHT FOR 6 NIGHT
     Dates: start: 20250804, end: 20250811
  16. CHOLECALCIFEROL [Suspect]
     Active Substance: CHOLECALCIFEROL
     Indication: Product used for unknown indication
     Dosage: 400 UNITS ONCE DAILY
     Dates: start: 20250320

REACTIONS (2)
  - Cleft palate [Not Recovered/Not Resolved]
  - Foetal exposure during pregnancy [Recovered/Resolved]

NARRATIVE: CASE EVENT DATE: 20251101
